FAERS Safety Report 10018468 (Version 1)
Quarter: 2014Q1

REPORT INFORMATION
  Report Type: Spontaneous
  Country: US (occurrence: US)
  Receive Date: 20140318
  Receipt Date: 20140318
  Transmission Date: 20141002
  Serious: Yes (Hospitalization, Other)
  Sender: FDA-Public Use
  Company Number: US-B.I. PHARMACEUTICALS,INC./RIDGEFIELD-2014-BI-10759BP

PATIENT
  Sex: Female

DRUGS (8)
  1. SPIRIVA [Suspect]
     Indication: PRODUCT USED FOR UNKNOWN INDICATION
     Route: 065
  2. MORPHINE [Concomitant]
     Route: 065
  3. VALIUM 10MG TID [Concomitant]
     Dosage: 30 MG
     Route: 065
  4. AUGMENTIN [Concomitant]
     Route: 065
  5. RADIATION THERAPY [Concomitant]
     Route: 065
  6. ANTI-ANXIETY [Concomitant]
     Route: 065
  7. ZOFRAN IV Q4HES [Concomitant]
     Route: 042
  8. XANAX [Concomitant]
     Route: 065

REACTIONS (15)
  - Pneumonia [Unknown]
  - Pneumonia aspiration [Unknown]
  - Lumbar puncture [Unknown]
  - Meningitis [Unknown]
  - Lung adenocarcinoma [Unknown]
  - Lung neoplasm malignant [Unknown]
  - Pulmonary mass [Unknown]
  - Spinal artery thrombosis [Unknown]
  - Craniocerebral injury [Unknown]
  - Haematoma [Unknown]
  - Large intestine polyp [Unknown]
  - Detoxification [Unknown]
  - Migraine [Unknown]
  - Nausea [Unknown]
  - Diarrhoea [Unknown]
